FAERS Safety Report 4426135-5 (Version None)
Quarter: 2004Q3

REPORT INFORMATION
  Report Type: 
  Country: None (occurrence: None)
  Receive Date: 20040811
  Receipt Date: 20040727
  Transmission Date: 20050211
  Serious: Yes (Other)
  Sender: FDA-Public Use
  Company Number: USA040362214

PATIENT
  Age: 77 Year
  Sex: Female
  Weight: 63 kg

DRUGS (8)
  1. FORTEO [Suspect]
     Indication: FRACTURE
     Dates: start: 20040101
  2. FORTEO [Suspect]
     Indication: OSTEOPOROSIS
     Dates: start: 20040101
  3. LOPRESSOR [Concomitant]
  4. PRILOSEC [Concomitant]
  5. LESCOL XL [Concomitant]
  6. ACETYLSALICYLIC ACID SRT [Concomitant]
  7. VITAMIN E [Concomitant]
  8. VITAMIN C [Concomitant]

REACTIONS (5)
  - CONDITION AGGRAVATED [None]
  - FALL [None]
  - GROIN PAIN [None]
  - JOINT EFFUSION [None]
  - UPPER LIMB FRACTURE [None]
